FAERS Safety Report 15440120 (Version 2)
Quarter: 2018Q4

REPORT INFORMATION
  Report Type: Spontaneous
  Country: FR (occurrence: FR)
  Receive Date: 20180928
  Receipt Date: 20181009
  Transmission Date: 20190204
  Serious: Yes (Other)
  Sender: FDA-Public Use
  Company Number: FR-PFIZER INC-2018386071

PATIENT
  Age: 38 Year
  Sex: Male

DRUGS (18)
  1. THIOTEPA. [Suspect]
     Active Substance: THIOTEPA
     Indication: STEM CELL TRANSPLANT
  2. ENDOXAN [CYCLOPHOSPHAMIDE] [Suspect]
     Active Substance: CYCLOPHOSPHAMIDE
     Indication: STEM CELL TRANSPLANT
  3. DEXAMETHASONE. [Suspect]
     Active Substance: DEXAMETHASONE
     Indication: PROPHYLAXIS AGAINST TRANSPLANT REJECTION
     Dosage: 40 MG, FROM 4 COURSES OF R-DIAM AT 2ND RELAPSE
     Route: 065
  4. BUSILVEX [Suspect]
     Active Substance: BUSULFAN
     Indication: STEM CELL TRANSPLANT
  5. METHOTREXATE SODIUM. [Suspect]
     Active Substance: METHOTREXATE SODIUM
     Dosage: 15 MG, FROM 4 COURSES OF R-DIAM AT 2ND RELAPSE
     Route: 037
  6. THIOTEPA. [Suspect]
     Active Substance: THIOTEPA
     Indication: PROPHYLAXIS AGAINST TRANSPLANT REJECTION
     Dosage: 250 MG/M2, DAY9,8 AND 7, CONDITIONING THERAPY FOR SECOND ASCT
     Route: 065
  7. RITUXIMAB. [Suspect]
     Active Substance: RITUXIMAB
     Indication: CENTRAL NERVOUS SYSTEM LYMPHOMA
     Dosage: 375 MG/M2, DAY1, 4 COURSES OF R-DIAM
     Route: 042
  8. IFOSFAMIDE. [Suspect]
     Active Substance: IFOSFAMIDE
     Indication: CENTRAL NERVOUS SYSTEM LYMPHOMA
     Dosage: 1500 MG/M2, DAY 1 TO 5, FROM 4 COURSES OF R-DIAM AT 2ND RELAPSE
     Route: 065
  9. ENDOXAN [CYCLOPHOSPHAMIDE] [Suspect]
     Active Substance: CYCLOPHOSPHAMIDE
     Indication: CENTRAL NERVOUS SYSTEM LYMPHOMA
     Dosage: 60 MG/KG, DAY3 AND 2, CONDITIONING THERAPY FOR SECOND ASCT
     Route: 065
  10. BUSILVEX [Suspect]
     Active Substance: BUSULFAN
     Indication: PROPHYLAXIS AGAINST TRANSPLANT REJECTION
     Dosage: 0.8 MG/KG, 4X/DAY, DAY6, 5 AND 4, CONDITIONING THERAPY FOR SECOND ASCT
     Route: 042
  11. CYTARABINE. [Suspect]
     Active Substance: CYTARABINE
     Indication: CENTRAL NERVOUS SYSTEM LYMPHOMA
     Dosage: 1500 MG/M2, 2X/DAY, DAY 1 AND 2, FROM 4 COURSES OF R-DIAM AT 2ND RELAPSE
     Route: 065
  12. ENDOXAN [CYCLOPHOSPHAMIDE] [Suspect]
     Active Substance: CYCLOPHOSPHAMIDE
     Indication: PROPHYLAXIS AGAINST TRANSPLANT REJECTION
     Dosage: 250 MG/KG, EVERY 12 HOURS (2 CYCLES OF COPADEM INDUCTION)
     Route: 065
  13. FILGRASTIM [Concomitant]
     Active Substance: FILGRASTIM
     Dosage: UNK
     Route: 065
  14. CYTARABINE. [Suspect]
     Active Substance: CYTARABINE
     Indication: PROPHYLAXIS AGAINST TRANSPLANT REJECTION
  15. LENOGRASTIM [Concomitant]
     Active Substance: LENOGRASTIM
     Dosage: 34 MUI/D, STARTING AT DAY 12 AFTER THE 2ND CYCLE OF R-DIAM
     Route: 065
  16. METHOTREXATE SODIUM. [Suspect]
     Active Substance: METHOTREXATE SODIUM
     Indication: CENTRAL NERVOUS SYSTEM LYMPHOMA
     Dosage: 3000 MG/M2, FROM 4 COURSES OF R-DIAM AT 2ND RELAPSE
     Route: 065
  17. TIORFAN [Suspect]
     Active Substance: RACECADOTRIL
     Dosage: UNK
  18. FORTUM [CEFTAZIDIME] [Suspect]
     Active Substance: CEFTAZIDIME

REACTIONS (3)
  - Mucosal inflammation [Recovering/Resolving]
  - Pseudomonal sepsis [Recovering/Resolving]
  - Enterobacter sepsis [Recovering/Resolving]
